FAERS Safety Report 16038613 (Version 2)
Quarter: 2019Q2

REPORT INFORMATION
  Report Type: Spontaneous
  Country: IN (occurrence: IN)
  Receive Date: 20190305
  Receipt Date: 20190429
  Transmission Date: 20190711
  Serious: Yes (Death, Other)
  Sender: FDA-Public Use
  Company Number: IN-BRISTOL-MYERS SQUIBB COMPANY-BMS-2019-021802

PATIENT
  Age: 36 Year
  Sex: Female

DRUGS (1)
  1. OPDYTA [Suspect]
     Active Substance: NIVOLUMAB
     Indication: METASTATIC MALIGNANT MELANOMA
     Dosage: 300 MG, UNK
     Route: 042
     Dates: start: 20181113

REACTIONS (2)
  - Malignant neoplasm progression [Fatal]
  - Therapy non-responder [Unknown]
